FAERS Safety Report 6177570-9 (Version None)
Quarter: 2009Q2

REPORT INFORMATION
  Report Type: 
  Country: None (occurrence: None)
  Receive Date: 20090501
  Receipt Date: 20090501
  Transmission Date: 20091009
  Serious: Yes (Life-Threatening, Hospitalization)
  Sender: FDA-Public Use
  Company Number: None

PATIENT
  Age: 77 Year
  Sex: Male
  Weight: 62 kg

DRUGS (12)
  1. CETUXIMAB [Suspect]
     Indication: OROPHARYNGEAL CANCER STAGE UNSPECIFIED
     Dosage: 250MG/M2 IV ONCE
     Route: 042
     Dates: start: 20090318
  2. AMLODIPINE [Concomitant]
  3. LORAZEPAM [Concomitant]
  4. DOCUSATE [Concomitant]
  5. LISINOPRIL [Concomitant]
  6. METOPROLOL SUCCINATE [Concomitant]
  7. NIACIN [Concomitant]
  8. PROCHLOPERAZINE [Concomitant]
  9. SENNOSIDE [Concomitant]
  10. TRIAMTERENE AND HYDROCHLOROTHIAZIDE [Concomitant]
  11. APAP W/ CODEINE [Concomitant]
  12. ONDANSETRON [Concomitant]

REACTIONS (7)
  - ANAPHYLACTIC REACTION [None]
  - BRADYCARDIA [None]
  - ENDOTRACHEAL INTUBATION COMPLICATION [None]
  - HYPOTENSION [None]
  - INFUSION RELATED REACTION [None]
  - PULSE ABSENT [None]
  - UNRESPONSIVE TO STIMULI [None]
